FAERS Safety Report 25610142 (Version 1)
Quarter: 2025Q3

REPORT INFORMATION
  Report Type: Report from Study
  Country: GB (occurrence: GB)
  Receive Date: 20250728
  Receipt Date: 20250728
  Transmission Date: 20251021
  Serious: Yes (Other)
  Sender: SAMSUNG BIOEPIS
  Company Number: GB-SAMSUNG BIOEPIS-SB-2025-25296

PATIENT
  Age: 79 Year
  Sex: Male

DRUGS (1)
  1. PYZCHIVA [Suspect]
     Active Substance: USTEKINUMAB-TTWE
     Indication: Psoriasis

REACTIONS (5)
  - Heart rate increased [Unknown]
  - Blood pressure increased [Unknown]
  - Myosclerosis [Unknown]
  - Peripheral swelling [Unknown]
  - Erythema [Unknown]
